FAERS Safety Report 11337571 (Version 1)
Quarter: 2015Q3

REPORT INFORMATION
  Report Type: Spontaneous
  Country: US (occurrence: US)
  Receive Date: 20150803
  Receipt Date: 20150803
  Transmission Date: 20151125
  Serious: No
  Sender: FDA-Public Use
  Company Number: US-ELI_LILLY_AND_COMPANY-US200907001246

PATIENT
  Age: 54 Year
  Sex: Male

DRUGS (1)
  1. ZYPREXA [Suspect]
     Active Substance: OLANZAPINE
     Indication: SCHIZOPHRENIA, PARANOID TYPE
     Dosage: 2.5 MG, DAILY (1/D)
     Dates: start: 200811, end: 200908

REACTIONS (7)
  - Blood pressure increased [Unknown]
  - Drug ineffective [Unknown]
  - Increased appetite [Recovered/Resolved]
  - Central obesity [Unknown]
  - Weight increased [Not Recovered/Not Resolved]
  - Obesity [Unknown]
  - Anger [Unknown]

NARRATIVE: CASE EVENT DATE: 200811
